FAERS Safety Report 4742851-X (Version None)
Quarter: 2005Q3

REPORT INFORMATION
  Report Type: 
  Country: None (occurrence: None)
  Receive Date: 20050811
  Receipt Date: 20050804
  Transmission Date: 20060218
  Serious: Yes (Other)
  Sender: FDA-Public Use
  Company Number: 2005UW11522

PATIENT
  Age: 67 Year
  Sex: Female

DRUGS (1)
  1. ATACAND [Suspect]
     Dosage: 50 TABLETS OVER A 2 DAY PERIOD
     Route: 048
     Dates: start: 20050803

REACTIONS (5)
  - BLOOD PRESSURE SYSTOLIC INCREASED [None]
  - HUNGER [None]
  - INTENTIONAL MISUSE [None]
  - OVERDOSE [None]
  - SUICIDE ATTEMPT [None]
